FAERS Safety Report 9245379 (Version 1)
Quarter: 2013Q1

REPORT INFORMATION
  Report Type: Spontaneous
  Country: US (occurrence: None)
  Receive Date: 20130305
  Receipt Date: 20130305
  Transmission Date: 20140127
  Serious: Yes (Other)
  Sender: FDA-Public Use
  Company Number: 163-21880-12060322

PATIENT
  Age: 87 Year
  Sex: Male

DRUGS (8)
  1. REVLIMID [Suspect]
     Indication: PLASMA CELL MYELOMA
     Route: 048
     Dates: start: 20120503
  2. OMEPRAZOLE (OMEPRAZOLE) [Concomitant]
  3. METOPROLOL TARTRATE (METOPROLOL TARTRATE) [Concomitant]
  4. ZETIA (EZETIMIBE) [Concomitant]
  5. CRESTOR (ROSUVASTATIN) [Concomitant]
  6. CENTRUM SILVER (CENTRUM SILVER) [Concomitant]
  7. METAMUCIL [Concomitant]
  8. CALCIUM (CALCIUM) [Concomitant]

REACTIONS (1)
  - Cerebrovascular accident [None]
